FAERS Safety Report 13619486 (Version 1)
Quarter: 2017Q2

REPORT INFORMATION
  Report Type: Spontaneous
  Country: US (occurrence: US)
  Receive Date: 20170606
  Receipt Date: 20170606
  Transmission Date: 20170830
  Serious: No
  Sender: FDA-Public Use
  Company Number: None

PATIENT
  Age: 47 Year
  Sex: Female
  Weight: 90 kg

DRUGS (1)
  1. LEVOTHYROXIN [Suspect]
     Active Substance: LEVOTHYROXINE
     Indication: HYPOTHYROIDISM
     Dosage: ?          OTHER STRENGTH:MCG;QUANTITY:90 TABLET(S);?
     Route: 048
     Dates: start: 20170505, end: 20170531

REACTIONS (2)
  - Retching [None]
  - Vomiting [None]

NARRATIVE: CASE EVENT DATE: 20170508
